FAERS Safety Report 10467121 (Version 4)
Quarter: 2015Q3

REPORT INFORMATION
  Report Type: Spontaneous
  Country: US (occurrence: US)
  Receive Date: 20140922
  Receipt Date: 20150708
  Transmission Date: 20151125
  Serious: Yes (Death, Hospitalization, Other)
  Sender: FDA-Public Use
  Company Number: US-MERCK-1409USA009876

PATIENT
  Sex: Male
  Weight: 68.27 kg

DRUGS (3)
  1. BYETTA [Suspect]
     Active Substance: EXENATIDE
     Indication: TYPE 2 DIABETES MELLITUS
     Dosage: 5 MCG, BID
     Route: 048
     Dates: start: 20060424, end: 20060920
  2. BYETTA [Suspect]
     Active Substance: EXENATIDE
     Dosage: 10 MCG, BID
     Route: 048
     Dates: start: 20060921, end: 20070405
  3. JANUVIA [Suspect]
     Active Substance: SITAGLIPTIN PHOSPHATE
     Indication: TYPE 2 DIABETES MELLITUS
     Dosage: 100 MG QD
     Route: 048
     Dates: start: 20080712, end: 20100916

REACTIONS (25)
  - Renal artery stenosis [Unknown]
  - Coeliac artery stenosis [Unknown]
  - Adrenal mass [Unknown]
  - Pancreatic carcinoma [Fatal]
  - Hypoglycaemia [Recovering/Resolving]
  - Dehydration [Recovered/Resolved]
  - Pancreatitis chronic [Not Recovered/Not Resolved]
  - Neuropathy peripheral [Unknown]
  - Type 2 diabetes mellitus [Recovering/Resolving]
  - Blood triglycerides increased [Unknown]
  - Hyponatraemia [Unknown]
  - Oesophagitis [Unknown]
  - Hypercholesterolaemia [Unknown]
  - Cataract operation [Unknown]
  - Orthostatic hypotension [Unknown]
  - Splenic vein occlusion [Unknown]
  - Hepatic steatosis [Unknown]
  - Lymphadenopathy [Unknown]
  - Hyperglycaemia [Unknown]
  - Lymphadenopathy [Unknown]
  - Hypertension [Unknown]
  - Coronary artery disease [Unknown]
  - Tonsillectomy [Unknown]
  - Laceration [Unknown]
  - Back pain [Not Recovered/Not Resolved]

NARRATIVE: CASE EVENT DATE: 20111206
